FAERS Safety Report 10091682 (Version 2)
Quarter: 2015Q3

REPORT INFORMATION
  Report Type: Spontaneous
  Country: US (occurrence: US)
  Receive Date: 20140421
  Receipt Date: 20150813
  Transmission Date: 20151125
  Serious: No
  Sender: FDA-Public Use
  Company Number: US-GILEAD-2013-0067316

PATIENT
  Age: 35 Year
  Sex: Female

DRUGS (3)
  1. KEFLEX [Concomitant]
     Active Substance: CEPHALEXIN
  2. REMODULIN [Concomitant]
     Active Substance: TREPROSTINIL
  3. LETAIRIS [Suspect]
     Active Substance: AMBRISENTAN
     Indication: COR PULMONALE CHRONIC
     Dosage: 5 MG, QD
     Route: 048
     Dates: start: 20070809

REACTIONS (1)
  - Fluid retention [Not Recovered/Not Resolved]
